FAERS Safety Report 16845537 (Version 5)
Quarter: 2020Q4

REPORT INFORMATION
  Report Type: Report from Study
  Country: MX (occurrence: MX)
  Receive Date: 20190924
  Receipt Date: 20201222
  Transmission Date: 20210113
  Serious: Yes (Hospitalization, Other)
  Sender: FDA-Public Use
  Company Number: MX-JNJFOC-20190924115

PATIENT
  Age: 69 Year
  Sex: Female
  Weight: 63 kg

DRUGS (5)
  1. SIMPONI [Suspect]
     Active Substance: GOLIMUMAB
     Route: 058
     Dates: start: 202005, end: 202011
  2. CALCITRIOL. [Concomitant]
     Active Substance: CALCITRIOL
  3. SIMPONI [Suspect]
     Active Substance: GOLIMUMAB
     Route: 058
     Dates: start: 20191205
  4. CELEBREX [Concomitant]
     Active Substance: CELECOXIB
  5. SIMPONI [Suspect]
     Active Substance: GOLIMUMAB
     Indication: RHEUMATOID ARTHRITIS
     Route: 058
     Dates: start: 20171202

REACTIONS (13)
  - Renal haemorrhage [Unknown]
  - Poisoning [Unknown]
  - Mobility decreased [Recovered/Resolved]
  - Clostridial infection [Recovered/Resolved]
  - Urinary tract infection [Not Recovered/Not Resolved]
  - Gastroenteritis [Not Recovered/Not Resolved]
  - Vertigo [Unknown]
  - Blood glucose abnormal [Unknown]
  - Weight decreased [Recovering/Resolving]
  - Varicella [Unknown]
  - Urine calcium [Unknown]
  - Spinal disorder [Unknown]
  - Influenza [Recovered/Resolved]

NARRATIVE: CASE EVENT DATE: 201912
